FAERS Safety Report 19763180 (Version 2)
Quarter: 2021Q3

REPORT INFORMATION
  Report Type: Report from Study
  Country: DE (occurrence: DE)
  Receive Date: 20210830
  Receipt Date: 20210909
  Transmission Date: 20211014
  Serious: Yes (Other)
  Sender: FDA-Public Use
  Company Number: DE-MYLANLABS-2021M1055913

PATIENT
  Sex: Female
  Weight: 94.5 kg

DRUGS (4)
  1. EXEMESTANE. [Suspect]
     Active Substance: EXEMESTANE
     Indication: BREAST CANCER METASTATIC
     Dosage: 25 MILLIGRAM, QD
     Route: 048
     Dates: start: 20190225
  2. KISQALI [Suspect]
     Active Substance: RIBOCICLIB
     Dosage: 400 MG, (SCHEMA 21 DAYS INTAKE, 7 DAYS PAUSE)
     Route: 048
     Dates: start: 20200616, end: 20200816
  3. KISQALI [Suspect]
     Active Substance: RIBOCICLIB
     Dosage: 600 MG, (SCHEMA 21 DAYS INTAKE, 7 DAYS PAUSE)
     Route: 048
     Dates: start: 20190225, end: 20200615
  4. KISQALI [Suspect]
     Active Substance: RIBOCICLIB
     Indication: BREAST CANCER METASTATIC
     Dosage: 200 MG (SCHEME 21 DAYS INTAKE, 7 DAYS PAUSE)
     Route: 048
     Dates: start: 20200817

REACTIONS (7)
  - Aspartate aminotransferase increased [Recovered/Resolved]
  - Hot flush [Not Recovered/Not Resolved]
  - Chest discomfort [Not Recovered/Not Resolved]
  - Alopecia [Recovering/Resolving]
  - Cough [Not Recovered/Not Resolved]
  - Neutropenia [Recovered/Resolved]
  - Leukopenia [Not Recovered/Not Resolved]

NARRATIVE: CASE EVENT DATE: 20190311
